FAERS Safety Report 6069087-7 (Version None)
Quarter: 2009Q1

REPORT INFORMATION
  Report Type: 
  Country: None (occurrence: None)
  Receive Date: 20090206
  Receipt Date: 20090202
  Transmission Date: 20090719
  Serious: Yes (Life-Threatening, Hospitalization)
  Sender: FDA-Public Use
  Company Number: US-ELI_LILLY_AND_COMPANY-US200901000848

PATIENT
  Sex: Female
  Weight: 129.25 kg

DRUGS (15)
  1. BYETTA [Suspect]
     Indication: TYPE 2 DIABETES MELLITUS
     Dosage: 5 UG, 2/D
     Route: 058
     Dates: start: 20070101, end: 20070101
  2. BYETTA [Suspect]
     Dosage: 10 UG, 2/D
     Route: 058
     Dates: start: 20070101, end: 20081125
  3. LANTUS [Concomitant]
     Indication: TYPE 2 DIABETES MELLITUS
     Dosage: 60 U, EACH MORNING
  4. NOVOLOG [Concomitant]
     Indication: TYPE 2 DIABETES MELLITUS
     Dosage: UNK, AS NEEDED
  5. COUMADIN [Concomitant]
     Dosage: UNK, AS NEEDED
  6. SINGULAIR [Concomitant]
     Indication: DYSPNOEA
     Dosage: 4 MG, UNK
  7. LIPITOR [Concomitant]
     Indication: BLOOD CHOLESTEROL INCREASED
     Dosage: 40 MG, UNK
  8. ADVAIR DISKUS 100/50 [Concomitant]
     Route: 055
  9. SPIRIVA [Concomitant]
     Indication: DYSPNOEA
     Dosage: UNK, DAILY (1/D)
  10. XOPENEX [Concomitant]
     Indication: DYSPNOEA
  11. ALDACTONE [Concomitant]
     Indication: FLUID RETENTION
  12. LASIX [Concomitant]
     Dosage: 40 MG, UNK
  13. DETROL [Concomitant]
     Indication: POLLAKIURIA
     Dosage: 4 MG, UNK
  14. TYLENOL /SCH/ [Concomitant]
     Indication: ARTHRITIS
     Dosage: 800 MG, UNK
  15. ANAPRIL [Concomitant]
     Indication: BLOOD PRESSURE
     Dosage: 20 MG, UNK

REACTIONS (5)
  - CARDIAC FAILURE CONGESTIVE [None]
  - HYPOTENSION [None]
  - HYPOXIA [None]
  - MULTI-ORGAN FAILURE [None]
  - RENAL IMPAIRMENT [None]
